FAERS Safety Report 10167051 (Version 1)
Quarter: 2014Q2

REPORT INFORMATION
  Report Type: Spontaneous
  Country: AU (occurrence: AU)
  Receive Date: 20140512
  Receipt Date: 20140512
  Transmission Date: 20141212
  Serious: Yes (Other)
  Sender: FDA-Public Use
  Company Number: PHHY2014AU054709

PATIENT
  Age: 59 Year
  Sex: Male

DRUGS (6)
  1. ZOMETA [Suspect]
     Dosage: UNK UKN, UNK
     Dates: start: 201208
  2. CRIZOTINIB [Suspect]
     Indication: NON-SMALL CELL LUNG CANCER METASTATIC
     Dosage: UNK UKN, UNK
     Dates: start: 20130916
  3. CRIZOTINIB [Suspect]
     Indication: LUNG ADENOCARCINOMA METASTATIC
  4. CARBOPLATIN [Concomitant]
     Dosage: UNK UKN, UNK (6 CYCLES)
     Dates: start: 201206, end: 201210
  5. PEMETREXED [Concomitant]
     Dosage: UNK UKN, UNK (6 CYCLES)
     Dates: start: 201206, end: 201210
  6. PEMETREXED [Concomitant]
     Dosage: UNK UKN, UNK
     Dates: start: 201210, end: 201308

REACTIONS (10)
  - Spleen disorder [Unknown]
  - Prostatomegaly [Unknown]
  - Cholelithiasis [Unknown]
  - Pleural effusion [Unknown]
  - Malignant neoplasm progression [Unknown]
  - Metastases to central nervous system [Unknown]
  - Central nervous system lesion [Unknown]
  - Thirst [Unknown]
  - Diarrhoea [Unknown]
  - Decreased appetite [Unknown]
